FAERS Safety Report 9222615 (Version 3)
Quarter: 2013Q2

REPORT INFORMATION
  Report Type: Spontaneous
  Country: AT (occurrence: AT)
  Receive Date: 20130410
  Receipt Date: 20130529
  Transmission Date: 20140414
  Serious: Yes (Hospitalization)
  Sender: FDA-Public Use
  Company Number: PHHY2013AT034267

PATIENT
  Sex: Male

DRUGS (12)
  1. EBETREXAT [Suspect]
     Indication: RHEUMATOID ARTHRITIS
     Dosage: 25 MG, QW
     Dates: start: 200404, end: 201303
  2. ROACTEMRA [Suspect]
     Indication: RHEUMATOID ARTHRITIS
     Dates: start: 201008, end: 201302
  3. HYDAL [Concomitant]
  4. LYRICA [Concomitant]
  5. VOLTAREN [Concomitant]
  6. SERETIDE [Concomitant]
  7. SINGULAR [Concomitant]
  8. SULTANOL [Concomitant]
  9. TAMSU [Concomitant]
  10. FORSTEO [Concomitant]
  11. CYMBALTA [Concomitant]
  12. OLEOVIT//RETINOL [Concomitant]

REACTIONS (2)
  - Bursitis [Not Recovered/Not Resolved]
  - Impaired healing [Not Recovered/Not Resolved]
